FAERS Safety Report 21251152 (Version 1)
Quarter: 2022Q3

REPORT INFORMATION
  Report Type: Spontaneous
  Country: US (occurrence: US)
  Receive Date: 20220824
  Receipt Date: 20220824
  Transmission Date: 20221026
  Serious: No
  Sender: FDA-Public Use
  Company Number: US-GLAXOSMITHKLINE-USCH2022029531

PATIENT
  Age: 93 Year

DRUGS (1)
  1. ADVIL LIQUI-GELS [Suspect]
     Active Substance: IBUPROFEN
     Indication: Arthritis
     Dosage: UNK
     Dates: start: 2021

REACTIONS (2)
  - Drug ineffective [Unknown]
  - Expired product administered [Unknown]
